FAERS Safety Report 7679366-5 (Version None)
Quarter: 2011Q3

REPORT INFORMATION
  Report Type: 
  Country: None (occurrence: None)
  Receive Date: 20110812
  Receipt Date: 20110808
  Transmission Date: 20111222
  Serious: Yes (Death, Other)
  Sender: FDA-Public Use
  Company Number: PHHY2011US65584

PATIENT
  Sex: Male

DRUGS (2)
  1. EXJADE [Suspect]
     Indication: IRON OVERLOAD
  2. EXJADE [Suspect]
     Indication: IRON METABOLISM DISORDER
     Dosage: 1250 MG, QD
     Route: 048

REACTIONS (4)
  - SEPSIS [None]
  - BONE MARROW FAILURE [None]
  - MYELOFIBROSIS [None]
  - CARDIAC FAILURE CONGESTIVE [None]
